FAERS Safety Report 17460170 (Version 3)
Quarter: 2020Q2

REPORT INFORMATION
  Report Type: Report from Study
  Country: GB (occurrence: GB)
  Receive Date: 20200225
  Receipt Date: 20200611
  Transmission Date: 20200713
  Serious: Yes (Hospitalization, Disabling)
  Sender: FDA-Public Use
  Company Number: GB-BAUSCH-BL-2020-000788

PATIENT
  Age: 28 Year
  Sex: Male
  Weight: 200 kg

DRUGS (1)
  1. KYNTHEUM [Suspect]
     Active Substance: BRODALUMAB
     Indication: PSORIASIS
     Dosage: 210 MG WEEK 0, 1, 2 THEN EVERY TWO WEEKS
     Route: 058
     Dates: start: 20191205, end: 20200409

REACTIONS (4)
  - Psoriatic arthropathy [Recovered/Resolved with Sequelae]
  - Drug ineffective [Unknown]
  - Arthralgia [Recovered/Resolved with Sequelae]
  - Pneumonia [Recovering/Resolving]

NARRATIVE: CASE EVENT DATE: 20200127
